FAERS Safety Report 10056158 (Version 1)
Quarter: 2014Q2

REPORT INFORMATION
  Report Type: Spontaneous
  Country: US (occurrence: None)
  Receive Date: 20140401
  Receipt Date: 20140401
  Transmission Date: 20141212
  Serious: Yes (Other)
  Sender: FDA-Public Use
  Company Number: FK201401069

PATIENT
  Age: 56 Year
  Sex: Male

DRUGS (5)
  1. FLUOROURACIL (MANUFACTURER UNKNOWN) (FLUOROURACIL) (FLUOROURACIL) [Suspect]
     Indication: METASTATIC GASTRIC CANCER
  2. OXALIPLATIN (MANUFACTURER UNKNOWN) (OXALIPLATIN) (OXALIPLATIN) [Suspect]
     Indication: METASTATIC GASTRIC CANCER
  3. DOCETAXEL (MANUFACTURER UNKNOWN) (DOCETAXEL) (DOCETAXEL) [Suspect]
     Indication: METASTATIC GASTRIC CANCER
  4. CPT-11 (IRONOTECN HYDROCHLORIDE) [Concomitant]
  5. BEVACIZUMAB (BEVACIZUMAB) [Concomitant]

REACTIONS (5)
  - Pneumonia [None]
  - Neuropathy peripheral [None]
  - Nausea [None]
  - Vomiting [None]
  - Small intestinal obstruction [None]
